FAERS Safety Report 10348640 (Version 1)
Quarter: 2014Q3

REPORT INFORMATION
  Report Type: Spontaneous
  Country: FR (occurrence: None)
  Receive Date: 20140725
  Receipt Date: 20140725
  Transmission Date: 20150326
  Serious: Yes (Other)
  Sender: FDA-Public Use
  Company Number: 7308518

PATIENT
  Age: 92 Year
  Sex: Male

DRUGS (1)
  1. LEVOTHYROX 100 (LEVOTHROXINE SODIUM) (TABLET) (LEVOTHROXINE SODIUM) [Suspect]
     Active Substance: LEVOTHYROXINE
     Indication: PRODUCT USED FOR UNKNOWN INDICATION
     Dosage: 100MCG, MORNING ORAL
     Route: 048

REACTIONS (6)
  - Hallucination [None]
  - Hyperthyroidism [None]
  - Agitation [None]
  - Cognitive disorder [None]
  - Angina unstable [None]
  - Accidental overdose [None]

NARRATIVE: CASE EVENT DATE: 20140122
